FAERS Safety Report 16244206 (Version 3)
Quarter: 2019Q2

REPORT INFORMATION
  Report Type: Spontaneous
  Country: GB (occurrence: GB)
  Receive Date: 20190426
  Receipt Date: 20190501
  Transmission Date: 20190711
  Serious: Yes (Disabling)
  Sender: FDA-Public Use
  Company Number: GB-ELI_LILLY_AND_COMPANY-GB201904010476

PATIENT
  Age: 49 Year
  Sex: Female

DRUGS (2)
  1. OLANZAPINE PAMOATE [Suspect]
     Active Substance: OLANZAPINE PAMOATE
     Indication: PRODUCT USED FOR UNKNOWN INDICATION
     Dosage: 405 MG, UNKNOWN
     Route: 051
     Dates: start: 20190107
  2. LEVOTHYROXINE. [Concomitant]
     Active Substance: LEVOTHYROXINE
     Indication: PRODUCT USED FOR UNKNOWN INDICATION
     Dosage: UNK, UNKNOWN
     Route: 065

REACTIONS (11)
  - Speech disorder [Not Recovered/Not Resolved]
  - Hypersomnia [Not Recovered/Not Resolved]
  - Gait disturbance [Not Recovered/Not Resolved]
  - Finger deformity [Not Recovered/Not Resolved]
  - Disorientation [Not Recovered/Not Resolved]
  - Aggression [Not Recovered/Not Resolved]
  - Vision blurred [Not Recovered/Not Resolved]
  - Confusional state [Not Recovered/Not Resolved]
  - Swelling face [Not Recovered/Not Resolved]
  - Irritability [Not Recovered/Not Resolved]
  - Seborrhoea [Not Recovered/Not Resolved]
